FAERS Safety Report 16843739 (Version 1)
Quarter: 2019Q4

REPORT INFORMATION
  Report Type: Spontaneous
  Country: US (occurrence: US)
  Receive Date: 20190923
  Receipt Date: 20190923
  Transmission Date: 20200122
  Serious: Yes (Other)
  Sender: FDA-Public Use
  Company Number: None

PATIENT
  Age: 38 Year
  Sex: Female
  Weight: 76.5 kg

DRUGS (7)
  1. SONATA [Concomitant]
     Active Substance: ZALEPLON
  2. IRON [Concomitant]
     Active Substance: IRON
  3. DOXEPIN [Concomitant]
     Active Substance: DOXEPIN
  4. VITAMIN C [Concomitant]
     Active Substance: ASCORBIC ACID
  5. ZALEPLON 10 MG CAPSULE [Suspect]
     Active Substance: ZALEPLON
     Indication: INSOMNIA
     Dosage: ?          QUANTITY:60 CAPSULE(S);?
     Route: 048
     Dates: start: 20190921, end: 20190922
  6. LEXAPRO [Concomitant]
     Active Substance: ESCITALOPRAM OXALATE
  7. VALIUM [Concomitant]
     Active Substance: DIAZEPAM

REACTIONS (2)
  - Product substitution issue [None]
  - Insomnia [None]

NARRATIVE: CASE EVENT DATE: 20190921
